FAERS Safety Report 19521256 (Version 1)
Quarter: 2021Q3

REPORT INFORMATION
  Report Type: Spontaneous
  Country: US (occurrence: US)
  Receive Date: 20210712
  Receipt Date: 20210712
  Transmission Date: 20211014
  Serious: Yes (Death, Other)
  Sender: FDA-Public Use
  Company Number: US-PERRIGO-20US019032

PATIENT
  Age: 48 Year
  Sex: Female

DRUGS (8)
  1. PREVACID 24 HR [Suspect]
     Active Substance: LANSOPRAZOLE
     Indication: PRODUCT USED FOR UNKNOWN INDICATION
     Dosage: UNKNOWN, UNKNOWN
     Route: 048
     Dates: start: 20090518, end: 201501
  2. NEXIUM [Suspect]
     Active Substance: ESOMEPRAZOLE MAGNESIUM
     Dosage: 20 MG, QD
     Route: 048
     Dates: start: 2010, end: 2015
  3. NEXIUM 24HR [Suspect]
     Active Substance: ESOMEPRAZOLE MAGNESIUM
     Indication: PRODUCT USED FOR UNKNOWN INDICATION
     Dosage: 20 MG, QD
     Route: 048
     Dates: start: 199504, end: 201501
  4. PREVACID 24 HR [Suspect]
     Active Substance: LANSOPRAZOLE
     Dosage: 20 MG, QD
     Route: 048
     Dates: start: 2010, end: 2015
  5. NEXIUM 24HR [Suspect]
     Active Substance: ESOMEPRAZOLE MAGNESIUM
     Dosage: 20 MG, QD
     Route: 048
     Dates: start: 2010, end: 2015
  6. NEXIUM [Suspect]
     Active Substance: ESOMEPRAZOLE MAGNESIUM
     Indication: PRODUCT USED FOR UNKNOWN INDICATION
     Dosage: UNKNOWN, UNKNOWN
     Route: 065
     Dates: start: 199504, end: 201501
  7. PREVACID [Suspect]
     Active Substance: LANSOPRAZOLE
     Indication: PRODUCT USED FOR UNKNOWN INDICATION
     Dosage: UNKNOWN, UNKNOWN
     Route: 065
     Dates: start: 199504, end: 201501
  8. PREVACID [Suspect]
     Active Substance: LANSOPRAZOLE
     Dosage: 20 MG, QD
     Route: 048
     Dates: start: 2010, end: 2015

REACTIONS (8)
  - Nephrogenic anaemia [Unknown]
  - End stage renal disease [Fatal]
  - Acute kidney injury [Unknown]
  - Renal failure [Unknown]
  - Hyperparathyroidism secondary [Unknown]
  - Chronic kidney disease-mineral and bone disorder [Unknown]
  - Chronic kidney disease [Unknown]
  - Renal tubular necrosis [Unknown]

NARRATIVE: CASE EVENT DATE: 20141228
